FAERS Safety Report 23409058 (Version 1)
Quarter: 2024Q1

REPORT INFORMATION
  Report Type: Spontaneous
  Country: US (occurrence: None)
  Receive Date: 20240115
  Receipt Date: 20240115
  Transmission Date: 20240410
  Serious: Yes (Hospitalization)
  Sender: FDA-Public Use
  Company Number: None

PATIENT
  Age: 78 Year
  Sex: Male
  Weight: 56.52 kg

DRUGS (9)
  1. REVLIMID [Suspect]
     Active Substance: LENALIDOMIDE
     Indication: Non-Hodgkin^s lymphoma
     Dosage: FREQUENCY : DAILY;?
     Route: 048
     Dates: start: 20230731
  2. Levitiracetam 750 mg er [Concomitant]
  3. PANTOPRAZOLE SODIUM [Concomitant]
     Active Substance: PANTOPRAZOLE SODIUM
  4. tamsuloin 0.4mg [Concomitant]
  5. hyrdocortisone 2.5% cream [Concomitant]
  6. midodrine 5 mg [Concomitant]
  7. ALLOPURINOL [Concomitant]
     Active Substance: ALLOPURINOL
  8. vitamin b-12 500 mcg [Concomitant]
  9. LISINOPRIL [Concomitant]
     Active Substance: LISINOPRIL

REACTIONS (1)
  - Sepsis [None]

NARRATIVE: CASE EVENT DATE: 20230903
